FAERS Safety Report 4289949-0 (Version None)
Quarter: 2004Q1

REPORT INFORMATION
  Report Type: 
  Country: None (occurrence: None)
  Receive Date: 20040209
  Receipt Date: 20040129
  Transmission Date: 20041129
  Serious: Yes (Other)
  Sender: FDA-Public Use
  Company Number: PHNR2004AU00530

PATIENT
  Age: 37 Year
  Sex: Female

DRUGS (2)
  1. VOLTAREN [Suspect]
     Dosage: UNK, QD
  2. BREVINYL [Concomitant]

REACTIONS (1)
  - NEPHROTIC SYNDROME [None]
